FAERS Safety Report 4889755-X (Version None)
Quarter: 2006Q1

REPORT INFORMATION
  Report Type: 
  Country: None (occurrence: None)
  Receive Date: 20060124
  Receipt Date: 20050125
  Transmission Date: 20060701
  Serious: Yes (Other)
  Sender: FDA-Public Use
  Company Number: US-MERCK-0501USA04123

PATIENT
  Sex: Male
  Weight: 155 kg

DRUGS (1)
  1. VIOXX [Suspect]
     Route: 048
     Dates: end: 20031001

REACTIONS (9)
  - ANGINA PECTORIS [None]
  - CARDIOMEGALY [None]
  - DYSPNOEA EXERTIONAL [None]
  - LEUKOCYTOSIS [None]
  - MYOCARDIAL INFARCTION [None]
  - MYOCARDIAL ISCHAEMIA [None]
  - NIGHT SWEATS [None]
  - PNEUMONIA [None]
  - SLEEP APNOEA SYNDROME [None]
